FAERS Safety Report 22142032 (Version 11)
Quarter: 2025Q1

REPORT INFORMATION
  Report Type: Spontaneous
  Country: US (occurrence: US)
  Receive Date: 20230327
  Receipt Date: 20250109
  Transmission Date: 20250409
  Serious: Yes (Other)
  Sender: VERTEX
  Company Number: US-VERTEX PHARMACEUTICALS-2023-004162

PATIENT
  Age: 36 Year
  Sex: Male

DRUGS (5)
  1. TRIKAFTA [Suspect]
     Active Substance: ELEXACAFTOR\IVACAFTOR\TEZACAFTOR
     Indication: Cystic fibrosis
     Route: 048
  2. MINOCICLINA [Concomitant]
  3. CAFFEINE [Concomitant]
     Active Substance: CAFFEINE
  4. ALBUTEROL [Concomitant]
     Active Substance: ALBUTEROL
  5. INSULIN NOS [Concomitant]
     Active Substance: INSULIN NOS

REACTIONS (25)
  - Mental disorder [Unknown]
  - Memory impairment [Not Recovered/Not Resolved]
  - Brain fog [Recovered/Resolved]
  - Helicobacter infection [Recovered/Resolved]
  - Sinusitis fungal [Recovering/Resolving]
  - Aphasia [Unknown]
  - Cognitive disorder [Unknown]
  - Infective pulmonary exacerbation of cystic fibrosis [Unknown]
  - Performance status decreased [Unknown]
  - Blood glucose fluctuation [Unknown]
  - Cystic fibrosis related diabetes [Not Recovered/Not Resolved]
  - Anxiety [Recovering/Resolving]
  - Impaired work ability [Recovering/Resolving]
  - Asthma [Recovering/Resolving]
  - Panic attack [Recovered/Resolved]
  - Bronchial secretion retention [Recovered/Resolved]
  - Mycobacterium abscessus infection [Recovered/Resolved]
  - Asthenia [Recovering/Resolving]
  - Dysbiosis [Recovered/Resolved]
  - Intestinal barrier dysfunction [Unknown]
  - Post-acute COVID-19 syndrome [Recovered/Resolved]
  - Gastritis [Unknown]
  - Blood glucose abnormal [Recovering/Resolving]
  - Adrenal disorder [Unknown]
  - Fatigue [Unknown]
